FAERS Safety Report 25761359 (Version 2)
Quarter: 2025Q3

REPORT INFORMATION
  Report Type: Spontaneous
  Country: IN (occurrence: IN)
  Receive Date: 20250904
  Receipt Date: 20250912
  Transmission Date: 20251021
  Serious: Yes (Other)
  Sender: PFIZER
  Company Number: IN-PFIZER INC-PV202500046848

PATIENT
  Age: 72 Year
  Sex: Female

DRUGS (8)
  1. CRIZOTINIB [Suspect]
     Active Substance: CRIZOTINIB
     Dosage: 250 MG, 2X/DAY
     Route: 048
     Dates: start: 20250414
  2. LEVOLIN [LEVOSALBUTAMOL SULFATE] [Concomitant]
     Dosage: 0.63 MG, 3X/DAY
     Route: 045
  3. BUDESONIDE\FORMOTEROL FUMARATE [Concomitant]
     Active Substance: BUDESONIDE\FORMOTEROL FUMARATE
     Dosage: 0.5 MG, 2X/DAY
     Route: 045
  4. Ascoryl [Concomitant]
     Dosage: 5 ML, 3X/DAY
     Route: 048
  5. ACETAMINOPHEN [Concomitant]
     Active Substance: ACETAMINOPHEN
     Route: 048
  6. PANTOPRAZOLE [Concomitant]
     Active Substance: PANTOPRAZOLE
     Dosage: 40 MG, 1X/DAY,  MORNING EMPTY STOMACH
     Route: 048
  7. CREMAFFIN PLUS [Concomitant]
     Route: 048
     Dates: start: 20250414
  8. ZOLPIDEM TARTRATE [Concomitant]
     Active Substance: ZOLPIDEM TARTRATE
     Dosage: 5 MG, 1X/DAY (HS  FOR 21 DAYS)
     Route: 048
     Dates: start: 20250414

REACTIONS (8)
  - Acute myocardial infarction [Unknown]
  - Aspartate aminotransferase increased [Unknown]
  - Alanine aminotransferase increased [Unknown]
  - Oxygen saturation decreased [Unknown]
  - Vision blurred [Unknown]
  - Photophobia [Unknown]
  - Vitreous floaters [Unknown]
  - Glomerular filtration rate decreased [Unknown]

NARRATIVE: CASE EVENT DATE: 20250414
